FAERS Safety Report 8556253-1 (Version None)
Quarter: 2012Q3

REPORT INFORMATION
  Report Type: 
  Country: None (occurrence: None)
  Receive Date: 20120801
  Receipt Date: 20120726
  Transmission Date: 20120928
  Serious: No
  Sender: FDA-Public Use
  Company Number: US-PFIZER INC-2012181482

PATIENT

DRUGS (4)
  1. LOPID [Suspect]
  2. CALAN SR [Suspect]
  3. LIPITOR [Suspect]
  4. LYRICA [Suspect]

REACTIONS (1)
  - HEART RATE IRREGULAR [None]
